FAERS Safety Report 6916437-2 (Version None)
Quarter: 2010Q3

REPORT INFORMATION
  Report Type: 
  Country: None (occurrence: None)
  Receive Date: 20100810
  Receipt Date: 20100727
  Transmission Date: 20110219
  Serious: Yes (Hospitalization, Disabling, Other)
  Sender: FDA-Public Use
  Company Number: PHNU2004DE00766

PATIENT
  Sex: Male
  Weight: 89 kg

DRUGS (33)
  1. TEGRETOL [Interacting]
     Indication: EPILEPSY
     Dosage: 400 MG, QOD
     Route: 048
     Dates: start: 19820101
  2. TEGRETOL [Suspect]
     Indication: EPILEPSY
     Dosage: 1600 MG/D
     Route: 048
     Dates: start: 19850101
  3. MADOPAR [Interacting]
     Indication: PARKINSON'S DISEASE
     Dosage: 62.5 MG, TID
     Route: 048
     Dates: start: 19950101, end: 19990101
  4. MOVERGAN [Interacting]
     Indication: PARKINSON'S DISEASE
     Dosage: 1DF/DAY
     Route: 048
     Dates: start: 19960101
  5. PARKOTIL [Interacting]
     Indication: PARKINSON'S DISEASE
     Dosage: 0.20MG/DAY
     Route: 048
     Dates: start: 19960101, end: 19970101
  6. PARKOTIL [Interacting]
     Dosage: 1MG/DAY
     Route: 048
     Dates: start: 19970101
  7. PARKOTIL [Interacting]
     Dosage: .5 MG, QID
     Route: 048
  8. TASMAR [Interacting]
     Dosage: UNK
     Route: 048
     Dates: start: 19970101
  9. GABITRIL [Interacting]
     Dosage: 60MG/DAY
     Route: 048
     Dates: start: 19990101, end: 19990101
  10. SELEGILINE [Concomitant]
     Dosage: 5MG/DAY
     Dates: start: 19990101, end: 19990101
  11. LEVODOPA [Interacting]
     Indication: PARKINSON'S DISEASE
     Route: 048
     Dates: start: 19990101
  12. LEVODOPA [Interacting]
     Dosage: 50 MG, QID
     Route: 048
  13. TOPAMAX [Interacting]
     Dosage: 100MG/DAY
     Route: 048
     Dates: start: 20000101
  14. COMTESS [Suspect]
     Dosage: 200 MG, QID
     Route: 048
     Dates: start: 20010101
  15. AMANTADINE HCL [Interacting]
     Route: 048
  16. CARBABETA [Suspect]
     Indication: EPILEPSY
     Dosage: 400 MG, QID
     Route: 048
     Dates: start: 20020101
  17. CARBABETA [Suspect]
     Dosage: 400 MG, TID
     Route: 048
  18. CARBABETA [Suspect]
     Dosage: 400 MG, QID
     Route: 048
  19. REMERGIL [Concomitant]
     Dosage: 15MG/DAY
     Route: 048
     Dates: start: 20020101
  20. ZENTROPIL [Concomitant]
     Indication: EPILEPSY
     Dosage: 3DF/DAY
     Route: 065
     Dates: start: 19770101, end: 19850101
  21. KEPPRA [Concomitant]
     Dosage: 1000-1500MG/DAY
     Route: 065
     Dates: start: 20031101
  22. KEPPRA [Concomitant]
     Dosage: 500 MG, BID
     Route: 065
  23. ERGENYL ^SANOFI-SYNTHELABO^ [Suspect]
     Route: 065
  24. NEURONTIN [Suspect]
     Route: 065
  25. LAMICTAL [Concomitant]
     Indication: EPILEPSY
     Route: 065
  26. NACOM ^DUPONT PHARMA^ [Concomitant]
     Indication: EPILEPSY
     Route: 065
  27. PHENHYDAN [Concomitant]
  28. LEVETIRACETAM [Concomitant]
     Indication: EPILEPSY
     Dates: start: 20020101
  29. L-DOPA [Interacting]
  30. AMAN [Concomitant]
  31. CARBIDOPA AND LEVODOPA [Concomitant]
  32. PERGOLIDE [Concomitant]
  33. PRAMIPEXOLE DIHYDROCHLORIDE [Concomitant]
     Dosage: GRADUALLY INCREASED

REACTIONS (48)
  - ABNORMAL BEHAVIOUR [None]
  - ALOPECIA [None]
  - ANOSMIA [None]
  - APHASIA [None]
  - BASAL GANGLION DEGENERATION [None]
  - BRADYPHRENIA [None]
  - CEREBELLAR SYNDROME [None]
  - COGWHEEL RIGIDITY [None]
  - CONDITION AGGRAVATED [None]
  - DEPRESSION [None]
  - DISTURBANCE IN ATTENTION [None]
  - DRUG CHEMICAL INCOMPATIBILITY [None]
  - DYSARTHRIA [None]
  - DYSKINESIA [None]
  - ELECTROENCEPHALOGRAM ABNORMAL [None]
  - ENCEPHALOPATHY [None]
  - ERECTILE DYSFUNCTION [None]
  - FALL [None]
  - FATIGUE [None]
  - GAIT DISTURBANCE [None]
  - GENERAL PHYSICAL HEALTH DETERIORATION [None]
  - GRAND MAL CONVULSION [None]
  - HYPOKINESIA [None]
  - LIVER FUNCTION TEST ABNORMAL [None]
  - MALAISE [None]
  - MASKED FACIES [None]
  - MEMORY IMPAIRMENT [None]
  - MENTAL IMPAIRMENT [None]
  - MICROGRAPHIA [None]
  - MOBILITY DECREASED [None]
  - MOTOR DYSFUNCTION [None]
  - MOVEMENT DISORDER [None]
  - MUSCLE RIGIDITY [None]
  - MUSCLE SPASMS [None]
  - MUSCLE TWITCHING [None]
  - MYALGIA [None]
  - NERVE CONDUCTION STUDIES ABNORMAL [None]
  - NEUROLEPTIC MALIGNANT SYNDROME [None]
  - PARALYSIS [None]
  - PARKINSON'S DISEASE [None]
  - PARTIAL SEIZURES [None]
  - PERFORMANCE STATUS DECREASED [None]
  - POSTURE ABNORMAL [None]
  - REGRESSIVE BEHAVIOUR [None]
  - SALIVARY HYPERSECRETION [None]
  - SPEECH DISORDER [None]
  - TONGUE PARALYSIS [None]
  - TREMOR [None]
